FAERS Safety Report 9453197 (Version 2)
Quarter: 2013Q4

REPORT INFORMATION
  Report Type: Spontaneous
  Country: IT (occurrence: IT)
  Receive Date: 20130812
  Receipt Date: 20131001
  Transmission Date: 20140711
  Serious: Yes (Other)
  Sender: FDA-Public Use
  Company Number: IT-PFIZER INC-2013232229

PATIENT
  Age: 76 Year
  Sex: Female

DRUGS (3)
  1. AMLODIPINE BESILATE [Suspect]
     Dosage: 1 DF, 1X/DAY
     Route: 048
     Dates: start: 20120601, end: 20130531
  2. LASIX [Suspect]
     Dosage: 1 DF, 1X/DAY
     Route: 048
     Dates: start: 20120601, end: 20130531
  3. CANRENONE [Suspect]
     Dosage: 1 DF, 1X/DAY
     Route: 048
     Dates: start: 20120601, end: 20130531

REACTIONS (3)
  - Dehydration [Recovering/Resolving]
  - Hypotension [Recovering/Resolving]
  - Presyncope [Recovering/Resolving]
